FAERS Safety Report 20111451 (Version 1)
Quarter: 2021Q4

REPORT INFORMATION
  Report Type: Spontaneous
  Country: JP (occurrence: JP)
  Receive Date: 20211125
  Receipt Date: 20211125
  Transmission Date: 20220304
  Serious: Yes (Other)
  Sender: FDA-Public Use
  Company Number: JP-GSKNCCC-Case-01353359_AE-51758

PATIENT
  Sex: Female

DRUGS (1)
  1. PAXIL CR [Suspect]
     Active Substance: PAROXETINE HYDROCHLORIDE
     Indication: Depression
     Dosage: 12.5 MILLIGRAM, QD
     Route: 065

REACTIONS (3)
  - Abortion [Unknown]
  - Exposure via partner [Unknown]
  - Paternal exposure timing unspecified [Unknown]
